FAERS Safety Report 14573419 (Version 1)
Quarter: 2018Q1

REPORT INFORMATION
  Report Type: Report from Study
  Country: BR (occurrence: BR)
  Receive Date: 20180226
  Receipt Date: 20180226
  Transmission Date: 20180509
  Serious: Yes (Hospitalization, Other)
  Sender: FDA-Public Use
  Company Number: BR-JNJFOC-20180233709

PATIENT
  Age: 45 Year
  Sex: Female
  Weight: 67 kg

DRUGS (5)
  1. GLIFAGE [Concomitant]
     Active Substance: METFORMIN HYDROCHLORIDE
     Route: 065
  2. FOLAMIL [Concomitant]
     Route: 065
  3. CORTICORTEN [Concomitant]
     Active Substance: PREDNISONE
     Route: 065
  4. TECNOMET [Concomitant]
     Active Substance: METHOTREXATE
     Route: 065
  5. SIMPONI [Suspect]
     Active Substance: GOLIMUMAB
     Indication: RHEUMATOID ARTHRITIS
     Route: 058
     Dates: start: 20170726

REACTIONS (2)
  - Pain [Not Recovered/Not Resolved]
  - Lower respiratory tract infection bacterial [Unknown]

NARRATIVE: CASE EVENT DATE: 201712
